FAERS Safety Report 5288639-5 (Version None)
Quarter: 2007Q2

REPORT INFORMATION
  Report Type: 
  Country: None (occurrence: None)
  Receive Date: 20070405
  Receipt Date: 20070330
  Transmission Date: 20071010
  Serious: Yes (Other)
  Sender: FDA-Public Use
  Company Number: 2006UW25015

PATIENT
  Age: 19509 Day
  Sex: Male
  Weight: 83.6 kg

DRUGS (6)
  1. SEROQUEL [Suspect]
     Indication: SLEEP DISORDER
     Dosage: 100-600 MG.
     Route: 048
     Dates: start: 20060224, end: 20061115
  2. SEROQUEL [Suspect]
     Indication: DEPRESSION
     Dosage: 100-600 MG.
     Route: 048
     Dates: start: 20060224, end: 20061115
  3. SEROQUEL [Suspect]
     Indication: ANXIETY
     Dosage: 100-600 MG.
     Route: 048
     Dates: start: 20060224, end: 20061115
  4. ZOLOFT [Concomitant]
     Dates: start: 20060217
  5. REMERON [Concomitant]
     Dates: start: 20060224
  6. AMEYTRIPLINE [Concomitant]
     Dates: start: 20060913

REACTIONS (5)
  - DIABETES MELLITUS [None]
  - HEART RATE IRREGULAR [None]
  - MYOCARDIAL INFARCTION [None]
  - NEUROLEPTIC MALIGNANT SYNDROME [None]
  - TARDIVE DYSKINESIA [None]
